FAERS Safety Report 18198992 (Version 3)
Quarter: 2020Q4

REPORT INFORMATION
  Report Type: Spontaneous
  Country: US (occurrence: US)
  Receive Date: 20200826
  Receipt Date: 20201124
  Transmission Date: 20210113
  Serious: Yes (Other)
  Sender: FDA-Public Use
  Company Number: US-PURDUE PHARMA-USA-2020-0163266

PATIENT
  Sex: Male

DRUGS (7)
  1. OXYCONTIN [Suspect]
     Active Substance: OXYCODONE HYDROCHLORIDE
     Indication: NEURALGIA
     Dosage: 80 MG, UNK
     Route: 048
     Dates: start: 2000, end: 2015
  2. OXYCODONE HYDROCHLORIDE (SIMILAR TO NDA 22-272) [Suspect]
     Active Substance: OXYCODONE HYDROCHLORIDE
     Indication: PAIN
     Dosage: UNK, Q3H
     Route: 048
     Dates: start: 2015
  3. ENDOCET [Suspect]
     Active Substance: ACETAMINOPHEN\OXYCODONE HYDROCHLORIDE
     Indication: PRODUCT USED FOR UNKNOWN INDICATION
     Dosage: 10/650MG, UNK
     Route: 065
  4. OXYCODONE/ ACETAMINOPHEN TABLETS [Suspect]
     Active Substance: ACETAMINOPHEN\OXYCODONE HYDROCHLORIDE
     Indication: NEURALGIA
     Dosage: 10/325 MG, UNK
     Route: 048
     Dates: end: 2015
  5. DILAUDID [Suspect]
     Active Substance: HYDROMORPHONE HYDROCHLORIDE
     Indication: NEURALGIA
     Dosage: 8 MG, UNK
     Route: 065
     Dates: end: 2015
  6. HYDROCODONE BITARTRATE (SIMILAR TO NDA 206627) [Suspect]
     Active Substance: HYDROCODONE BITARTRATE
     Indication: PRODUCT USED FOR UNKNOWN INDICATION
     Route: 065
  7. DILAUDID [Suspect]
     Active Substance: HYDROMORPHONE HYDROCHLORIDE
     Indication: PAIN
     Dosage: UNK, Q6H
     Route: 065
     Dates: start: 2015

REACTIONS (10)
  - Pain [Unknown]
  - Memory impairment [Unknown]
  - Unevaluable event [Unknown]
  - Femur fracture [Unknown]
  - Hallucination [Unknown]
  - Amnesia [Unknown]
  - Feeling abnormal [Unknown]
  - Paranoia [Unknown]
  - Neck injury [Unknown]
  - Emotional distress [Unknown]

NARRATIVE: CASE EVENT DATE: 2015
